FAERS Safety Report 7307438-3 (Version None)
Quarter: 2011Q1

REPORT INFORMATION
  Report Type: 
  Country: None (occurrence: None)
  Receive Date: 20110209
  Receipt Date: 20110126
  Transmission Date: 20110831
  Serious: Yes (Hospitalization)
  Sender: FDA-Public Use
  Company Number: 011945

PATIENT
  Sex: Male

DRUGS (9)
  1. HYDROCORTISONE BUTYRATE PROPIONATE [Concomitant]
  2. MADOPAR /00349201/ [Concomitant]
  3. SELEGILINE HYDROCHLORIDE [Concomitant]
  4. ROTIGOTINE (ROTIGOTINE) [Suspect]
     Indication: PARKINSON'S DISEASE
     Dosage: (2 MG 1X/24 HOURS TRANSDERMAL) ; (16 MG 1X/24 HOURS TRANSDERMAL)
     Route: 062
     Dates: start: 20100323, end: 20100517
  5. ROTIGOTINE (ROTIGOTINE) [Suspect]
     Indication: PARKINSON'S DISEASE
     Dosage: (2 MG 1X/24 HOURS TRANSDERMAL) ; (16 MG 1X/24 HOURS TRANSDERMAL)
     Route: 062
     Dates: start: 20100126
  6. FLIVAS [Concomitant]
  7. DOPS [Concomitant]
  8. DIPHENHYDRAMINE [Concomitant]
  9. COMTAN [Concomitant]

REACTIONS (8)
  - NERVOUS SYSTEM DISORDER [None]
  - ANXIETY [None]
  - CEREBRAL ATROPHY [None]
  - HYPONATRAEMIA [None]
  - DYSPNOEA [None]
  - ACTIVITIES OF DAILY LIVING IMPAIRED [None]
  - BLOOD OSMOLARITY DECREASED [None]
  - INAPPROPRIATE ANTIDIURETIC HORMONE SECRETION [None]
